FAERS Safety Report 8455255-3 (Version None)
Quarter: 2012Q2

REPORT INFORMATION
  Report Type: 
  Country: None (occurrence: None)
  Receive Date: 20120614
  Receipt Date: 20120525
  Transmission Date: 20120825
  Serious: Yes (Hospitalization, Other)
  Sender: FDA-Public Use
  Company Number: 2012-001

PATIENT
  Age: 54 Year
  Sex: Male
  Weight: 76.2043 kg

DRUGS (8)
  1. DAPSONE [Suspect]
     Indication: ERYTHEMA MARGINATUM
     Dosage: 1/2 TAB 2X/D BY MOUTH;
     Route: 048
     Dates: start: 20120323, end: 20120418
  2. ATROVENT [Concomitant]
  3. CHOLESTEROL LOWERING DRUG [Concomitant]
  4. SINGULAIR [Concomitant]
  5. ALBUTEROL [Concomitant]
  6. SPIRONOLACTONE [Concomitant]
  7. STEROIDS [Concomitant]
  8. VITAMIN D [Concomitant]

REACTIONS (16)
  - NECK PAIN [None]
  - ASPARTATE AMINOTRANSFERASE INCREASED [None]
  - TONGUE DISORDER [None]
  - ALANINE AMINOTRANSFERASE INCREASED [None]
  - VIRAL RASH [None]
  - NAUSEA [None]
  - PYREXIA [None]
  - ABDOMINAL PAIN [None]
  - ERYTHEMA [None]
  - BLISTER [None]
  - HEADACHE [None]
  - ASTHENIA [None]
  - ANAEMIA [None]
  - IMPAIRED WORK ABILITY [None]
  - LIVER FUNCTION TEST ABNORMAL [None]
  - SKIN GRAFT [None]
